FAERS Safety Report 5582843-4 (Version None)
Quarter: 2007Q4

REPORT INFORMATION
  Report Type: 
  Country: None (occurrence: None)
  Receive Date: 20071231
  Receipt Date: 20071220
  Transmission Date: 20080405
  Serious: Yes (Death, Other)
  Sender: FDA-Public Use
  Company Number: 2007SP024862

PATIENT
  Age: 68 Year
  Sex: Male

DRUGS (8)
  1. EPTIFIBATIDE (S-P)  (EPTIFIBATIDE) [Suspect]
     Indication: ACUTE MYOCARDIAL INFARCTION
     Dosage: IV
     Route: 042
     Dates: start: 20071130, end: 20071201
  2. EPTIFIBATIDE (S-P)  (EPTIFIBATIDE) [Suspect]
     Indication: MYOCARDIAL INFARCTION
     Dosage: IV
     Route: 042
     Dates: start: 20071130, end: 20071201
  3. CLOPIDOGREL [Suspect]
     Indication: ACUTE MYOCARDIAL INFARCTION
     Dosage: IV
     Route: 042
     Dates: start: 20071130, end: 20071201
  4. CLOPIDOGREL [Suspect]
     Indication: MYOCARDIAL INFARCTION
     Dosage: IV
     Route: 042
     Dates: start: 20071130, end: 20071201
  5. HEPARIN [Suspect]
     Indication: ACUTE MYOCARDIAL INFARCTION
     Dosage: IV
     Route: 042
     Dates: start: 20071130, end: 20071201
  6. HEPARIN [Suspect]
     Indication: MYOCARDIAL INFARCTION
     Dosage: IV
     Route: 042
     Dates: start: 20071130, end: 20071201
  7. ASPIRIN [Suspect]
     Indication: ELECTROCARDIOGRAM ST SEGMENT ELEVATION
     Dosage: 100 MG;QD;PO
     Route: 048
     Dates: start: 20071130, end: 20071201
  8. ASPIRIN [Suspect]
     Indication: MYOCARDIAL INFARCTION
     Dosage: 100 MG;QD;PO
     Route: 048
     Dates: start: 20071130, end: 20071201

REACTIONS (2)
  - ACUTE MYOCARDIAL INFARCTION [None]
  - CEREBELLAR HAEMORRHAGE [None]
